FAERS Safety Report 8533800-7 (Version None)
Quarter: 2012Q3

REPORT INFORMATION
  Report Type: 
  Country: None (occurrence: None)
  Receive Date: 20120724
  Receipt Date: 20120714
  Transmission Date: 20120928
  Serious: Yes (Death, Life-Threatening, Hospitalization, Other)
  Sender: FDA-Public Use
  Company Number: US-MPIJNJ-2012-04057

PATIENT
  Sex: Male
  Weight: 31.8 kg

DRUGS (7)
  1. DAUNORUBICIN HYDROCHLORIDE [Suspect]
     Indication: ACUTE MYELOID LEUKAEMIA
     Dosage: 50 MG/M2, CYCLIC
     Route: 042
     Dates: start: 20120601, end: 20120605
  2. FENTANYL [Suspect]
     Indication: PRODUCT USED FOR UNKNOWN INDICATION
  3. VELCADE [Suspect]
     Indication: ACUTE MYELOID LEUKAEMIA
     Dosage: 1.3 MG/M2, CYCLIC
     Route: 040
     Dates: start: 20120601, end: 20120601
  4. ATIVAN [Suspect]
     Indication: PRODUCT USED FOR UNKNOWN INDICATION
     Dosage: UNK
  5. CYTARABINE [Suspect]
     Indication: ACUTE MYELOID LEUKAEMIA
     Dosage: UNK
     Route: 037
     Dates: start: 20120601, end: 20120611
  6. CYTARABINE [Suspect]
     Dosage: 100 MG/KG, BID
     Route: 042
     Dates: start: 20120601, end: 20120603
  7. ETOPOSIDE [Suspect]
     Indication: ACUTE MYELOID LEUKAEMIA
     Dosage: 100 MG/M2, CYCLIC
     Route: 042
     Dates: start: 20120601, end: 20120605

REACTIONS (26)
  - LEFT VENTRICULAR DYSFUNCTION [None]
  - DISSEMINATED INTRAVASCULAR COAGULATION [None]
  - ACIDOSIS [None]
  - VENTRICULAR FIBRILLATION [None]
  - SINUS TACHYCARDIA [None]
  - RENAL FAILURE ACUTE [None]
  - CARDIAC FAILURE [None]
  - HYPOALBUMINAEMIA [None]
  - MEDIASTINAL HAEMORRHAGE [None]
  - RESPIRATORY FAILURE [None]
  - HYPOTENSION [None]
  - ALANINE AMINOTRANSFERASE INCREASED [None]
  - BLOOD CREATININE INCREASED [None]
  - DYSPNOEA [None]
  - ABDOMINAL PAIN [None]
  - ACTIVATED PARTIAL THROMBOPLASTIN TIME PROLONGED [None]
  - PERICARDIAL EFFUSION [None]
  - MULTI-ORGAN FAILURE [None]
  - VENTRICULAR TACHYCARDIA [None]
  - ASPARTATE AMINOTRANSFERASE INCREASED [None]
  - EJECTION FRACTION DECREASED [None]
  - PULMONARY OEDEMA [None]
  - EMBOLISM [None]
  - ATELECTASIS [None]
  - ANGINA PECTORIS [None]
  - HYPERCALCAEMIA [None]
